FAERS Safety Report 4828531-0 (Version None)
Quarter: 2005Q4

REPORT INFORMATION
  Report Type: 
  Country: None (occurrence: None)
  Receive Date: 20051110
  Receipt Date: 20051108
  Transmission Date: 20060501
  Serious: Yes (Other)
  Sender: FDA-Public Use
  Company Number: B0399026A

PATIENT
  Age: 43 Year
  Sex: Female

DRUGS (1)
  1. EPIVIR [Suspect]
     Indication: HEPATITIS B
     Dosage: 1`00 MG/ PER DAY/ ORAL
     Route: 048

REACTIONS (1)
  - ICHTHYOSIS ACQUIRED [None]
